FAERS Safety Report 6036459-6 (Version None)
Quarter: 2009Q1

REPORT INFORMATION
  Report Type: 
  Country: None (occurrence: None)
  Receive Date: 20090112
  Receipt Date: 20081231
  Transmission Date: 20090719
  Serious: Yes (Other)
  Sender: FDA-Public Use
  Company Number: CHPA2008US23689

PATIENT
  Age: 71 Year
  Sex: Female
  Weight: 112 kg

DRUGS (2)
  1. VOLTAREN [Suspect]
     Indication: ARTHRITIS
     Dosage: QID, TOPICAL
     Route: 061
     Dates: start: 20081211
  2. INSULIN [Concomitant]

REACTIONS (3)
  - BLOOD GLUCOSE INCREASED [None]
  - DRUG ADMINISTERED AT INAPPROPRIATE SITE [None]
  - WRONG TECHNIQUE IN DRUG USAGE PROCESS [None]
